FAERS Safety Report 23325176 (Version 7)
Quarter: 2024Q1

REPORT INFORMATION
  Report Type: Spontaneous
  Country: GB (occurrence: GB)
  Receive Date: 20231221
  Receipt Date: 20240327
  Transmission Date: 20240410
  Serious: Yes (Hospitalization, Other)
  Sender: FDA-Public Use
  Company Number: GB-ROCHE-3180009

PATIENT
  Age: 59 Year
  Weight: 51 kg

DRUGS (36)
  1. LENALIDOMIDE [Suspect]
     Active Substance: LENALIDOMIDE
     Indication: Follicular lymphoma
     Dosage: 3 MG, 1X/DAY, CUMULATIVE DOSE: 800 MG
     Route: 065
  2. LENALIDOMIDE [Suspect]
     Active Substance: LENALIDOMIDE
     Indication: Follicular lymphoma
     Dosage: 3 MILLIGRAM, QD,(3 MG, QD, CUMULATIVE DOSE: 800 MG)
     Route: 065
  3. LENALIDOMIDE [Suspect]
     Active Substance: LENALIDOMIDE
     Indication: Follicular lymphoma
     Dosage: 20 MG, ONCE DAILY FOR 1 - 21 DAYS. ON 26MAR2023 LAST DOSE OF DRUG ADMINISTERED, DURATION: 179 DAYS
     Route: 048
     Dates: start: 20220929, end: 20230326
  4. LENALIDOMIDE [Suspect]
     Active Substance: LENALIDOMIDE
     Indication: Follicular lymphoma
     Dosage: 3 MG, UNK UNK, QD, CUMULATIVE DOSE: 800 MG
     Route: 065
  5. LENALIDOMIDE [Suspect]
     Active Substance: LENALIDOMIDE
     Indication: Follicular lymphoma
     Dosage: UNK
     Route: 065
  6. LENALIDOMIDE [Suspect]
     Active Substance: LENALIDOMIDE
     Indication: Follicular lymphoma
     Dosage: UNK UNK, QD, CUMULATIVE DOSE: 800 MG
     Route: 065
  7. VINCRISTINE [Suspect]
     Active Substance: VINCRISTINE
     Indication: Follicular lymphoma
     Dosage: UNK, ON 17JUN2022, LAST DOSE OF STUDY DRUG
     Route: 065
     Dates: start: 20211111
  8. VINCRISTINE [Suspect]
     Active Substance: VINCRISTINE
     Indication: Follicular lymphoma
     Dosage: UNK, ON 17JUN2022, LAST DOSE OF STUDY DRUG
     Route: 065
     Dates: start: 20211111
  9. VINCRISTINE [Suspect]
     Active Substance: VINCRISTINE
     Indication: Follicular lymphoma
     Dosage: UNK, START DATE: 17-JUN-2022
     Route: 065
     Dates: start: 20220617
  10. VINCRISTINE [Suspect]
     Active Substance: VINCRISTINE
     Indication: Follicular lymphoma
     Dosage: UNK
     Route: 065
     Dates: start: 20220617
  11. VINCRISTINE [Suspect]
     Active Substance: VINCRISTINE
     Indication: Follicular lymphoma
     Dosage: UNK
     Route: 065
     Dates: start: 20211111
  12. VINCRISTINE [Suspect]
     Active Substance: VINCRISTINE
     Indication: Follicular lymphoma
     Dosage: ON 17/JUN/2022, THE PATIENT RECEIVED LAST DOSE OF STUDY DRUG
     Route: 065
     Dates: start: 20220617, end: 20220617
  13. CYCLOPHOSPHAMIDE [Suspect]
     Active Substance: CYCLOPHOSPHAMIDE
     Indication: Follicular lymphoma
     Dosage: UNK
     Route: 065
     Dates: start: 20211111
  14. CYCLOPHOSPHAMIDE [Suspect]
     Active Substance: CYCLOPHOSPHAMIDE
     Indication: Follicular lymphoma
     Dosage: ON 17/JUN/2022, THE PATIENT RECEIVED LAST DOSE OF STUDY DRUG, DURATION: 219 DAYS
     Route: 065
     Dates: start: 20211111, end: 20220617
  15. CYCLOPHOSPHAMIDE [Suspect]
     Active Substance: CYCLOPHOSPHAMIDE
     Indication: Follicular lymphoma
     Dosage: UNK
     Route: 065
     Dates: start: 20220617
  16. CYCLOPHOSPHAMIDE [Suspect]
     Active Substance: CYCLOPHOSPHAMIDE
     Indication: Follicular lymphoma
     Dosage: UNK, START DATE: 11-NOV-2021
     Route: 065
     Dates: start: 20211111
  17. CYCLOPHOSPHAMIDE [Suspect]
     Active Substance: CYCLOPHOSPHAMIDE
     Indication: Follicular lymphoma
     Dosage: ON 17JUN2022, LAST DOSE OF STUDY DRUG
     Route: 065
     Dates: start: 20211111, end: 20220617
  18. CYCLOPHOSPHAMIDE [Suspect]
     Active Substance: CYCLOPHOSPHAMIDE
     Indication: Follicular lymphoma
     Dosage: UNK, START DATE: 17-JUN-2022 00:00
     Route: 065
     Dates: start: 20220617
  19. VINCRISTINE SULFATE [Suspect]
     Active Substance: VINCRISTINE SULFATE
     Indication: Follicular lymphoma
     Dosage: UNK, ON 17JUN2022, LAST DOSE OF STUDY DRUG ROUTE OF ADMIN (FREE TEXT): UNKNOWN ROUTE
     Route: 065
     Dates: start: 20211111, end: 20220617
  20. PREDNISONE [Suspect]
     Active Substance: PREDNISONE
     Indication: Follicular lymphoma
     Dosage: ON 17/JUN/2022, THE PATIENT RECEIVED LAST DOSE OF STUDY DRUG, DURATION: 219 DAYS
     Route: 065
     Dates: start: 20211111, end: 20220617
  21. PREDNISONE [Suspect]
     Active Substance: PREDNISONE
     Indication: Follicular lymphoma
     Dosage: ON 17JUN2022, LAST DOSE OF STUDY DRUG, DURATION: 219 DAYS
     Route: 065
     Dates: start: 20211111, end: 20220617
  22. PREDNISONE [Suspect]
     Active Substance: PREDNISONE
     Indication: Follicular lymphoma
     Dosage: UNK, DURATION: 219 DAYS
     Route: 065
     Dates: start: 20220617
  23. PREDNISONE [Suspect]
     Active Substance: PREDNISONE
     Indication: Follicular lymphoma
     Dosage: UNK, DURATION: 219 DAYS
     Route: 065
     Dates: start: 20220617
  24. PIPERACILLIN SODIUM\TAZOBACTAM SODIUM [Concomitant]
     Active Substance: PIPERACILLIN SODIUM\TAZOBACTAM SODIUM
     Indication: Product used for unknown indication
     Dosage: 4.5 GRAM (INTRAVENOUS DRIP)
     Route: 041
     Dates: start: 20220820
  25. PIPERACILLIN SODIUM\TAZOBACTAM SODIUM [Concomitant]
     Active Substance: PIPERACILLIN SODIUM\TAZOBACTAM SODIUM
     Indication: Product used for unknown indication
     Dosage: 4.5 G (PERSISTENT 1 WEEK, START DATE: 27-MAR-2023)
     Route: 065
     Dates: start: 20230327
  26. PIPERACILLIN SODIUM\TAZOBACTAM SODIUM [Concomitant]
     Active Substance: PIPERACILLIN SODIUM\TAZOBACTAM SODIUM
     Indication: Product used for unknown indication
     Dosage: 4.5 G (PERSISTENT 1 WEEK, START DATE: 27-MAR-2023, INTRAVENOUS DRIP)
     Route: 041
     Dates: start: 20230327
  27. PIPERACILLIN SODIUM\TAZOBACTAM SODIUM [Concomitant]
     Active Substance: PIPERACILLIN SODIUM\TAZOBACTAM SODIUM
     Indication: Product used for unknown indication
     Dosage: 4.5 GRAM
     Dates: start: 20220820
  28. OBINUTUZUMAB [Suspect]
     Active Substance: OBINUTUZUMAB
     Indication: Follicular lymphoma
     Dosage: 1000 MG (EVERY 8 WEEKS) ON 17JUN2022, LAST DOSE/ON 05MAR2023, LAST DOSE PRIOR TO EVENT), DURATION...
     Route: 042
     Dates: start: 20211111, end: 20230305
  29. OBINUTUZUMAB [Suspect]
     Active Substance: OBINUTUZUMAB
     Indication: Follicular lymphoma
     Dosage: 1000 MILLIGRAM, CYCLIC (ONCE IN 8 WEEK) (ON 17/JUN/2022, THE PATIENT RECEIVED LAST DOSE OF STUDY ...
     Route: 042
     Dates: start: 20211111, end: 20220617
  30. OBINUTUZUMAB [Suspect]
     Active Substance: OBINUTUZUMAB
     Indication: Follicular lymphoma
     Dosage: 1000 MILLIGRAM, ONCE IN 8 WEEKS
     Route: 042
     Dates: start: 20230305
  31. OBINUTUZUMAB [Suspect]
     Active Substance: OBINUTUZUMAB
     Indication: Follicular lymphoma
     Dosage: 1000 MG (EVERY 8 WEEKS) ON 17JUN2022, LAST DOSE/ON 05MAR2023, LAST DOSE PRIOR TO EVENT, START DATE:
     Route: 042
     Dates: end: 20230305
  32. OBINUTUZUMAB [Suspect]
     Active Substance: OBINUTUZUMAB
     Indication: Follicular lymphoma
     Dosage: 1000 MILLIGRAM, ONCE IN 8 WEEK (ON 17/JUN/2022, THE PATIENT RECEIVED LAST DOSE OF STUDY DRUG), START
     Route: 042
     Dates: end: 20220617
  33. OBINUTUZUMAB [Suspect]
     Active Substance: OBINUTUZUMAB
     Indication: Follicular lymphoma
     Dosage: 1000 MILLIGRAM, ONCE IN 8 WEEKS, START DATE: 05-MAR-2023
     Route: 042
     Dates: start: 20230305
  34. PREDNISONE [Suspect]
     Active Substance: PREDNISONE
     Indication: Follicular lymphoma
     Dosage: ON 17/JUN/2022, THE PATIENT RECEIVED LAST DOSE OF STUDY DRUG, DURATION: 219 DAYS
     Route: 065
     Dates: start: 20211111, end: 20220617
  35. PREDNISONE [Suspect]
     Active Substance: PREDNISONE
     Indication: Follicular lymphoma
     Dosage: UNK, DURATION: 219 DAYS
     Route: 065
     Dates: start: 20220617
  36. PREDNISONE [Suspect]
     Active Substance: PREDNISONE
     Indication: Follicular lymphoma
     Dosage: ON 17/JUN/2022, THE PATIENT RECEIVED LAST DOSE OF STUDY DRUG., START DATE: 11-NOV-2021, DURATION ...
     Route: 065
     Dates: start: 20211111, end: 20220617

REACTIONS (7)
  - COVID-19 [Recovered/Resolved]
  - Pneumonia [Unknown]
  - Neutropenic sepsis [Recovering/Resolving]
  - Neutropenia [Recovering/Resolving]
  - Malaise [Unknown]
  - Lethargy [Unknown]
  - C-reactive protein increased [Unknown]

NARRATIVE: CASE EVENT DATE: 20220820
